FAERS Safety Report 22194504 (Version 1)
Quarter: 2023Q2

REPORT INFORMATION
  Report Type: Spontaneous
  Country: US (occurrence: US)
  Receive Date: 20230411
  Receipt Date: 20230411
  Transmission Date: 20230722
  Serious: No
  Sender: FDA-Public Use
  Company Number: US-AUROBINDO-AUR-APL-2022-009868

PATIENT
  Age: 55 Year
  Sex: Female

DRUGS (4)
  1. LISINOPRIL [Suspect]
     Active Substance: LISINOPRIL
     Indication: Blood pressure increased
     Dosage: 20 MILLIGRAM
     Route: 065
  2. KEYTRUDA [Suspect]
     Active Substance: PEMBROLIZUMAB
     Indication: Product used for unknown indication
     Dosage: UNK,
     Route: 065
     Dates: start: 20220131, end: 20220205
  3. KEYTRUDA [Suspect]
     Active Substance: PEMBROLIZUMAB
     Dosage: UNK
     Route: 065
     Dates: start: 20220301
  4. LENVIMA [Suspect]
     Active Substance: LENVATINIB
     Indication: Endometrial cancer
     Dosage: 10 MILLIGRAM, DAILY
     Route: 048
     Dates: start: 20220131

REACTIONS (2)
  - Cough [Recovering/Resolving]
  - Therapeutic response decreased [Recovering/Resolving]
